FAERS Safety Report 21379313 (Version 4)
Quarter: 2025Q2

REPORT INFORMATION
  Report Type: Spontaneous
  Country: US (occurrence: US)
  Receive Date: 20220927
  Receipt Date: 20250405
  Transmission Date: 20250716
  Serious: No
  Sender: MACLEODS
  Company Number: None

PATIENT

DRUGS (3)
  1. TRIAMCINOLONE [Suspect]
     Active Substance: TRIAMCINOLONE
     Indication: Skin discolouration
     Dosage: 2/DAY FOR 2 WEEKS, THEN 1 WEEK OFF, THEN AGAIN 2/DAY (NDC 33342-329-15)
     Route: 065
     Dates: start: 20220421, end: 2023
  2. KETOCONAZOLE [Suspect]
     Active Substance: KETOCONAZOLE
     Indication: Skin discolouration
     Dosage: 2/DAY FOR 2 WEEKS, THEN 1 WEEK OFF, THEN AGAIN 2/DAY FOR 2 WEEKS (NDC 21922-025-04) (MFG: ENCUBE)
     Route: 065
     Dates: start: 202307
  3. VITAMINS [Concomitant]
     Active Substance: VITAMINS
     Indication: Product used for unknown indication
     Route: 065

REACTIONS (1)
  - Alopecia [Not Recovered/Not Resolved]

NARRATIVE: CASE EVENT DATE: 20220101
